FAERS Safety Report 24895214 (Version 1)
Quarter: 2025Q1

REPORT INFORMATION
  Report Type: Spontaneous
  Country: US (occurrence: US)
  Receive Date: 20250128
  Receipt Date: 20250128
  Transmission Date: 20250409
  Serious: Yes (Other)
  Sender: MARKSANS PHARMA LIMITED
  Company Number: US-MARKSANS PHARMA LIMITED-MPL202500008

PATIENT

DRUGS (2)
  1. DULOXETINE HYDROCHLORIDE [Suspect]
     Active Substance: DULOXETINE HYDROCHLORIDE
     Indication: Anxiety
     Route: 065
  2. DULOXETINE HYDROCHLORIDE [Suspect]
     Active Substance: DULOXETINE HYDROCHLORIDE
     Indication: Depression

REACTIONS (7)
  - Atrial fibrillation [Recovered/Resolved]
  - Vasoconstriction [Recovered/Resolved]
  - Supraventricular tachycardia [Unknown]
  - Cognitive disorder [Recovered/Resolved]
  - Cyanosis [Recovered/Resolved]
  - Coagulopathy [Unknown]
  - Anxiety [Recovered/Resolved]
